FAERS Safety Report 5616634-2 (Version None)
Quarter: 2008Q1

REPORT INFORMATION
  Report Type: 
  Country: None (occurrence: None)
  Receive Date: 20080207
  Receipt Date: 20071126
  Transmission Date: 20080703
  Serious: No
  Sender: FDA-Public Use
  Company Number: A0695722A

PATIENT
  Age: 76 Year
  Sex: Male

DRUGS (12)
  1. PAXIL CR [Suspect]
     Indication: DEPRESSION
     Dosage: 12.5MG TWICE PER DAY
     Route: 048
     Dates: start: 20020101
  2. VERAMYST [Suspect]
     Dosage: 1SPR PER DAY
     Route: 045
     Dates: start: 20071001
  3. TRICOR [Concomitant]
  4. CYMBALTA [Concomitant]
  5. XANAX [Concomitant]
  6. UNSPECIFIED MEDICATION [Concomitant]
  7. XALATAN [Concomitant]
  8. PREDNISONE TAB [Concomitant]
  9. ATROPINE [Concomitant]
  10. CELEBREX [Concomitant]
  11. NEXIUM [Concomitant]
  12. LIPITOR [Concomitant]

REACTIONS (1)
  - EPISTAXIS [None]
